FAERS Safety Report 16108247 (Version 1)
Quarter: 2019Q1

REPORT INFORMATION
  Report Type: Report from Study
  Country: AU (occurrence: AU)
  Receive Date: 20190322
  Receipt Date: 20190322
  Transmission Date: 20190418
  Serious: Yes (Hospitalization)
  Sender: FDA-Public Use
  Company Number: AU-EISAI MEDICAL RESEARCH-EC-2019-053900

PATIENT
  Age: 65 Year
  Sex: Female
  Weight: 76.1 kg

DRUGS (16)
  1. PEMBROLIZUMAB. [Suspect]
     Active Substance: PEMBROLIZUMAB
     Route: 041
     Dates: start: 20181220, end: 20181220
  2. VITAMIN D [Concomitant]
     Active Substance: CHOLECALCIFEROL
     Dates: start: 201606
  3. IRON [Concomitant]
     Active Substance: IRON
     Dates: start: 20181020
  4. METOPROLOL. [Concomitant]
     Active Substance: METOPROLOL
     Dates: start: 20181019
  5. OXYCODONE [Concomitant]
     Active Substance: OXYCODONE
     Dates: start: 20181108
  6. LENVATINIB [Suspect]
     Active Substance: LENVATINIB
     Indication: ENDOMETRIAL CANCER
     Route: 048
     Dates: start: 20181018, end: 20190108
  7. TELMISARTAN. [Concomitant]
     Active Substance: TELMISARTAN
     Dates: start: 200606
  8. ACETAMINOPHEN. [Concomitant]
     Active Substance: ACETAMINOPHEN
     Dates: start: 20181101
  9. MAGNESIUM [Concomitant]
     Active Substance: MAGNESIUM
     Dates: start: 20181123
  10. TARGIN [Concomitant]
     Active Substance: NALOXONE HYDROCHLORIDE\OXYCODONE HYDROCHLORIDE
     Dates: start: 20181108
  11. PANTOPRAZOLE [Concomitant]
     Active Substance: PANTOPRAZOLE
     Dates: start: 201406
  12. HYDROCHLOROTHIAZIDE. [Concomitant]
     Active Substance: HYDROCHLOROTHIAZIDE
     Dates: start: 200606
  13. LIPITOR [Concomitant]
     Active Substance: ATORVASTATIN CALCIUM
     Dates: start: 201206
  14. PEMBROLIZUMAB. [Suspect]
     Active Substance: PEMBROLIZUMAB
     Indication: ENDOMETRIAL CANCER
     Route: 041
     Dates: start: 20181018, end: 20181129
  15. METOCLOPRAMIDE. [Concomitant]
     Active Substance: METOCLOPRAMIDE
     Dates: start: 20181108
  16. ESCITALOPRAM [Concomitant]
     Active Substance: ESCITALOPRAM OXALATE
     Dates: start: 200806

REACTIONS (1)
  - Pain [Recovered/Resolved]

NARRATIVE: CASE EVENT DATE: 20190308
